FAERS Safety Report 8110045-6 (Version None)
Quarter: 2012Q1

REPORT INFORMATION
  Report Type: 
  Country: None (occurrence: None)
  Receive Date: 20120202
  Receipt Date: 20120104
  Transmission Date: 20120608
  Serious: Yes (Death)
  Sender: FDA-Public Use
  Company Number: US-COVIDIEN/TYCO HEALTHCARE/MALLINCKRODT-T201200157

PATIENT
  Age: 45 Year
  Sex: Female

DRUGS (10)
  1. FLUOXETINE [Suspect]
     Route: 048
  2. CLONAZEPAM [Suspect]
     Route: 048
  3. DIPHENHYDRAMINE HCL [Suspect]
     Route: 048
  4. HYDROCODONE BITARTRATE AND ACETAMINOPHEN [Suspect]
     Route: 048
  5. PROPOXYPHENE NAPSYLATE W/ ACETAMINOPHEN [Suspect]
     Route: 048
  6. TOPIRAMATE [Suspect]
     Route: 048
  7. LAMOTRIGINE [Suspect]
     Route: 048
  8. PREGABALIN [Suspect]
     Route: 048
  9. ACETAMINOPHEN W/DIPHENHYDRAMINE HYDROCHLORIDE [Suspect]
     Route: 048
  10. PRAMIPEXOLE DIHYCHLLORIDE [Suspect]
     Route: 048

REACTIONS (1)
  - DEATH [None]
